FAERS Safety Report 11037811 (Version 2)
Quarter: 2015Q2

REPORT INFORMATION
  Report Type: Spontaneous
  Country: US (occurrence: US)
  Receive Date: 20150416
  Receipt Date: 20150518
  Transmission Date: 20150821
  Serious: Yes (Life-Threatening, Hospitalization, Other)
  Sender: FDA-Public Use
  Company Number: US-009507513-1504USA004928

PATIENT
  Age: 31 Year
  Sex: Female

DRUGS (4)
  1. NEXPLANON [Suspect]
     Active Substance: ETONOGESTREL
     Indication: CONTRACEPTION
     Dosage: 68 MG ETONOGESTREL (ONE SINGLE DOSE)
     Route: 059
     Dates: start: 201410, end: 201503
  2. MINASTRIN 24 FE [Suspect]
     Active Substance: ETHINYL ESTRADIOL\NORETHINDRONE ACETATE
     Indication: METRORRHAGIA
     Dosage: UNK
     Dates: start: 2015
  3. CORTICOSTEROIDS (UNSPECIFIED) [Concomitant]
     Active Substance: UNSPECIFIED INGREDIENT
     Dosage: INHALED STEROID
     Route: 055
  4. MEDROL [Concomitant]
     Active Substance: METHYLPREDNISOLONE
     Dosage: DOSE PACK

REACTIONS (4)
  - Influenza [Unknown]
  - Pulmonary embolism [Unknown]
  - Metrorrhagia [Not Recovered/Not Resolved]
  - Peripheral embolism [Unknown]

NARRATIVE: CASE EVENT DATE: 201503
